FAERS Safety Report 10783008 (Version 1)
Quarter: 2015Q1

REPORT INFORMATION
  Report Type: Spontaneous
  Country: US (occurrence: US)
  Receive Date: 20150210
  Receipt Date: 20150210
  Transmission Date: 20150721
  Serious: No
  Sender: FDA-Public Use
  Company Number: US-GLAXOSMITHKLINE-A1079919A

PATIENT

DRUGS (1)
  1. VALTREX [Suspect]
     Active Substance: VALACYCLOVIR HYDROCHLORIDE
     Indication: HERPES VIRUS INFECTION
     Dosage: 500 MG
     Route: 065
     Dates: start: 20040219

REACTIONS (4)
  - Ill-defined disorder [Unknown]
  - Headache [Unknown]
  - Drug administration error [Unknown]
  - Treatment noncompliance [Unknown]
